FAERS Safety Report 11025048 (Version 1)
Quarter: 2015Q2

REPORT INFORMATION
  Report Type: Report from Study
  Country: GB (occurrence: None)
  Receive Date: 20150410
  Receipt Date: 20150410
  Transmission Date: 20150821
  Serious: Yes (Death)
  Sender: FDA-Public Use
  Company Number: AMAG201500260

PATIENT

DRUGS (1)
  1. RIENSO (FERUMOXYTOL) INJECTION [Suspect]
     Active Substance: FERUMOXYTOL
     Indication: IMAGING PROCEDURE
     Dosage: SINGLE
     Route: 042
     Dates: start: 20140701, end: 20140701

REACTIONS (5)
  - Aortic aneurysm rupture [None]
  - Cardiac arrest [None]
  - Infection [None]
  - Concomitant disease progression [None]
  - Chronic obstructive pulmonary disease [None]

NARRATIVE: CASE EVENT DATE: 20150327
